FAERS Safety Report 9679067 (Version 3)
Quarter: 2013Q4

REPORT INFORMATION
  Report Type: Spontaneous
  Country: GB (occurrence: GB)
  Receive Date: 20131108
  Receipt Date: 20131119
  Transmission Date: 20140711
  Serious: Yes (Other)
  Sender: FDA-Public Use
  Company Number: GB-009507513-1311GBR000017

PATIENT
  Age: 25 Year
  Sex: Female

DRUGS (2)
  1. NEXPLANON [Suspect]
     Indication: CONTRACEPTION
     Dosage: UNK
     Route: 059
     Dates: start: 20120529, end: 20131023
  2. NEXPLANON [Suspect]
     Dosage: UNK
     Route: 059

REACTIONS (2)
  - Device breakage [Unknown]
  - Device kink [Unknown]
